FAERS Safety Report 7864723-4 (Version None)
Quarter: 2011Q4

REPORT INFORMATION
  Report Type: 
  Country: None (occurrence: None)
  Receive Date: 20111028
  Receipt Date: 20111021
  Transmission Date: 20120403
  Serious: Yes (Death, Other)
  Sender: FDA-Public Use
  Company Number: SK-CELGENEUS-260-21880-11102535

PATIENT
  Sex: Female

DRUGS (5)
  1. LYRICA [Concomitant]
     Route: 065
  2. BISPHOSPHONATES [Concomitant]
     Route: 065
  3. CALCIUM CARBONATE [Concomitant]
     Route: 065
  4. OPIOIDS [Concomitant]
     Route: 065
  5. REVLIMID [Suspect]
     Route: 048
     Dates: start: 20110101

REACTIONS (4)
  - MULTIPLE MYELOMA [None]
  - NEUTROPENIA [None]
  - URINARY TRACT INFECTION [None]
  - RENAL FAILURE [None]
